FAERS Safety Report 15262381 (Version 2)
Quarter: 2018Q3

REPORT INFORMATION
  Report Type: Spontaneous
  Country: DE (occurrence: DE)
  Receive Date: 20180809
  Receipt Date: 20180911
  Transmission Date: 20181010
  Serious: Yes (Other)
  Sender: FDA-Public Use
  Company Number: PHHY2018DE059379

PATIENT
  Sex: Female
  Weight: 76 kg

DRUGS (2)
  1. ILARIS [Suspect]
     Active Substance: CANAKINUMAB
     Dosage: 300 MG, (EVERY 8 WEEKS)
     Route: 065
  2. ILARIS [Suspect]
     Active Substance: CANAKINUMAB
     Indication: STILL^S DISEASE
     Dosage: 150 MG,(EVERY 8 WEEKS)
     Route: 065
     Dates: start: 201301

REACTIONS (10)
  - Muscle rupture [Unknown]
  - Weight increased [Unknown]
  - Drug ineffective [Unknown]
  - Haemorrhage [Unknown]
  - Myalgia [Unknown]
  - Muscle spasms [Unknown]
  - Arthropathy [Unknown]
  - Inappropriate schedule of drug administration [Unknown]
  - Pyrexia [Unknown]
  - Feeling abnormal [Unknown]
